FAERS Safety Report 7680826-1 (Version None)
Quarter: 2011Q3

REPORT INFORMATION
  Report Type: 
  Country: None (occurrence: None)
  Receive Date: 20110812
  Receipt Date: 20110805
  Transmission Date: 20111222
  Serious: Yes (Hospitalization, Disabling, Other)
  Sender: FDA-Public Use
  Company Number: GB-MERCK-1108GBR00039

PATIENT
  Age: 78 Year
  Sex: Female

DRUGS (3)
  1. ACETAMINOPHEN AND CODEINE [Concomitant]
     Route: 065
  2. FOSAMAX [Suspect]
     Route: 048
     Dates: end: 20110301
  3. SIMVASTATIN [Concomitant]
     Route: 048

REACTIONS (1)
  - STRESS FRACTURE [None]
